FAERS Safety Report 16471571 (Version 1)
Quarter: 2019Q2

REPORT INFORMATION
  Report Type: Spontaneous
  Country: ES (occurrence: ES)
  Receive Date: 20190624
  Receipt Date: 20190624
  Transmission Date: 20190711
  Serious: Yes (Other)
  Sender: FDA-Public Use
  Company Number: ES-ANIPHARMA-2019-ES-000032

PATIENT
  Sex: 0

DRUGS (1)
  1. MISOPROSTOL (NON-SPECIFIC) [Suspect]
     Active Substance: MISOPROSTOL
     Indication: PRODUCT USED FOR UNKNOWN INDICATION
     Route: 015

REACTIONS (2)
  - Tachycardia foetal [Unknown]
  - Exposure during pregnancy [Unknown]
